FAERS Safety Report 9712488 (Version 1)
Quarter: 2013Q4

REPORT INFORMATION
  Report Type: Spontaneous
  Country: US (occurrence: US)
  Receive Date: 20131126
  Receipt Date: 20131126
  Transmission Date: 20140711
  Serious: No
  Sender: FDA-Public Use
  Company Number: US-BRISTOL-MYERS SQUIBB COMPANY-19187921

PATIENT
  Age: 48 Year
  Sex: Female
  Weight: 58.05 kg

DRUGS (6)
  1. BYDUREON [Suspect]
     Indication: TYPE 2 DIABETES MELLITUS
     Route: 058
     Dates: end: 20130710
  2. NOVOLOG [Concomitant]
  3. INSULIN [Concomitant]
     Dosage: 1DF:20 UNITS
     Route: 058
  4. INSULIN [Concomitant]
     Route: 058
  5. LEVEMIR [Concomitant]
     Dosage: 1DF:40 UNITS
     Route: 058
  6. METFORMIN [Concomitant]
     Route: 048

REACTIONS (2)
  - Weight decreased [Recovered/Resolved]
  - Decreased appetite [Not Recovered/Not Resolved]
